FAERS Safety Report 8251226-0 (Version None)
Quarter: 2012Q2

REPORT INFORMATION
  Report Type: 
  Country: None (occurrence: None)
  Receive Date: 20120402
  Receipt Date: 20120326
  Transmission Date: 20120825
  Serious: Yes (Hospitalization)
  Sender: FDA-Public Use
  Company Number: US-JNJFOC-20120312940

PATIENT
  Age: 59 Year
  Sex: Male

DRUGS (8)
  1. LATANOPROST [Concomitant]
  2. DIOVAN [Concomitant]
  3. TRILIPIX [Concomitant]
  4. NASONEX [Concomitant]
  5. SIMVASTATIN [Concomitant]
  6. HYDROCHLOROTHIAZIDE [Concomitant]
  7. SINGULAIR [Concomitant]
  8. XARELTO [Suspect]
     Indication: KNEE ARTHROPLASTY
     Route: 048

REACTIONS (1)
  - PULMONARY EMBOLISM [None]
